FAERS Safety Report 8447923-4 (Version None)
Quarter: 2012Q2

REPORT INFORMATION
  Report Type: 
  Country: None (occurrence: None)
  Receive Date: 20120619
  Receipt Date: 20120611
  Transmission Date: 20120825
  Serious: Yes (Hospitalization)
  Sender: FDA-Public Use
  Company Number: US-JNJFOC-20120605639

PATIENT
  Age: 63 Year
  Sex: Female
  Weight: 93.44 kg

DRUGS (1)
  1. XARELTO [Suspect]
     Indication: KNEE ARTHROPLASTY
     Route: 048
     Dates: start: 20120323, end: 20120326

REACTIONS (3)
  - PAIN IN EXTREMITY [None]
  - PULMONARY EMBOLISM [None]
  - OEDEMA PERIPHERAL [None]
